FAERS Safety Report 8200615-9 (Version None)
Quarter: 2012Q1

REPORT INFORMATION
  Report Type: 
  Country: None (occurrence: None)
  Receive Date: 20120312
  Receipt Date: 20120301
  Transmission Date: 20120608
  Serious: Yes (Other)
  Sender: FDA-Public Use
  Company Number: US-BRISTOL-MYERS SQUIBB COMPANY-16428450

PATIENT

DRUGS (1)
  1. GLUCOPHAGE [Suspect]
     Dosage: DOSAGE-3/1 WEEK FOR A MNTH

REACTIONS (1)
  - ELECTROCONVULSIVE THERAPY [None]
